FAERS Safety Report 4523186-7 (Version None)
Quarter: 2004Q4

REPORT INFORMATION
  Report Type: 
  Country: None (occurrence: None)
  Receive Date: 20041201
  Receipt Date: 20041119
  Transmission Date: 20050328
  Serious: Yes (Hospitalization)
  Sender: FDA-Public Use
  Company Number: 2004-03700

PATIENT
  Age: 79 Year
  Sex: Male

DRUGS (1)
  1. IMMUCYST (BCG - IT (CONNAUGHT)), [Suspect]
     Dosage: 81 MG / WEEK
     Dates: start: 20031006, end: 20040818

REACTIONS (3)
  - FISTULA [None]
  - PROSTATIC ABSCESS [None]
  - TUBERCULOSIS [None]
